FAERS Safety Report 26067037 (Version 2)
Quarter: 2025Q4

REPORT INFORMATION
  Report Type: Report from Study
  Country: US (occurrence: US)
  Receive Date: 20251119
  Receipt Date: 20251125
  Transmission Date: 20260119
  Serious: Yes (Other)
  Sender: ABBVIE
  Company Number: US-ABBVIE-6553901

PATIENT
  Age: 45 Year
  Sex: Female

DRUGS (2)
  1. SKYRIZI [Suspect]
     Active Substance: RISANKIZUMAB-RZAA
     Indication: Colitis ulcerative
     Dosage: FORM STRENGTH: 360 MG
     Route: 058
     Dates: start: 2025
  2. SKYRIZI [Suspect]
     Active Substance: RISANKIZUMAB-RZAA
     Indication: Colitis ulcerative
     Dosage: LAST ADMIN DATE 2025
     Route: 042
     Dates: start: 20250410

REACTIONS (9)
  - Gallbladder disorder [Unknown]
  - Dyspnoea [Unknown]
  - Swelling face [Unknown]
  - Crohn^s disease [Unknown]
  - Heart rate abnormal [Unknown]
  - Arthralgia [Not Recovered/Not Resolved]
  - Fatigue [Recovering/Resolving]
  - Fistula [Unknown]
  - Pain [Unknown]

NARRATIVE: CASE EVENT DATE: 20250101
